FAERS Safety Report 4965714-3 (Version None)
Quarter: 2006Q1

REPORT INFORMATION
  Report Type: 
  Country: None (occurrence: None)
  Receive Date: 20060112
  Receipt Date: 20060112
  Transmission Date: 20060701
  Serious: Yes (Life-Threatening, Hospitalization)
  Sender: FDA-Public Use
  Company Number: None

PATIENT
  Sex: Female
  Weight: 133.8111 kg

DRUGS (1)
  1. MIRENA [Suspect]
     Dates: start: 20051207, end: 20060110

REACTIONS (3)
  - FIBRIN D DIMER INCREASED [None]
  - PAIN IN EXTREMITY [None]
  - PULMONARY EMBOLISM [None]
